FAERS Safety Report 23648768 (Version 3)
Quarter: 2024Q2

REPORT INFORMATION
  Report Type: Spontaneous
  Country: US (occurrence: US)
  Receive Date: 20240319
  Receipt Date: 20240607
  Transmission Date: 20240716
  Serious: Yes (Other)
  Sender: FDA-Public Use
  Company Number: US-002147023-NVSC2024US053733

PATIENT
  Sex: Male

DRUGS (1)
  1. MEKINIST [Suspect]
     Active Substance: TRAMETINIB DIMETHYL SULFOXIDE
     Indication: Hairy cell leukaemia
     Dosage: UNK
     Route: 065

REACTIONS (2)
  - Hairy cell leukaemia recurrent [Unknown]
  - Product use in unapproved indication [Unknown]
